FAERS Safety Report 9243127 (Version 2)
Quarter: 2013Q2

REPORT INFORMATION
  Report Type: Spontaneous
  Country: BR (occurrence: BR)
  Receive Date: 20130419
  Receipt Date: 20130501
  Transmission Date: 20140414
  Serious: Yes (Hospitalization, Other)
  Sender: FDA-Public Use
  Company Number: BR-ABBOTT-13P-020-1077271-00

PATIENT
  Age: 34 Year
  Sex: Female

DRUGS (33)
  1. KALETRA [Suspect]
     Indication: HIV INFECTION
     Dates: start: 200311, end: 2006
  2. KALETRA [Suspect]
     Dates: start: 200811
  3. RITONAVIR [Suspect]
     Indication: PRODUCT USED FOR UNKNOWN INDICATION
     Dates: start: 200701
  4. RITONAVIR [Suspect]
  5. ZIDOVUDINE [Suspect]
     Indication: PRODUCT USED FOR UNKNOWN INDICATION
  6. ZIDOVUDINE [Suspect]
  7. ZIDOVUDINE [Suspect]
  8. LAMIVUDINE [Suspect]
     Indication: PRODUCT USED FOR UNKNOWN INDICATION
  9. LAMIVUDINE [Suspect]
  10. LAMIVUDINE [Suspect]
     Dates: start: 200209
  11. LAMIVUDINE [Suspect]
     Dates: start: 200301
  12. LAMIVUDINE [Suspect]
  13. LAMIVUDINE [Suspect]
     Dates: start: 200701
  14. LAMIVUDINE [Suspect]
     Dates: start: 200811
  15. LAMIVUDINE [Suspect]
  16. ATAZANAVIR [Suspect]
     Indication: PRODUCT USED FOR UNKNOWN INDICATION
     Dates: start: 200701
  17. ATAZANAVIR [Suspect]
     Dates: start: 200903
  18. EFAVIRENZ [Suspect]
     Indication: PRODUCT USED FOR UNKNOWN INDICATION
  19. EFAVIRENZ [Suspect]
  20. DIDEOXYINOSINE [Suspect]
     Indication: PRODUCT USED FOR UNKNOWN INDICATION
     Dates: start: 200311
  21. TENOFOVIR [Suspect]
     Indication: PRODUCT USED FOR UNKNOWN INDICATION
  22. TENOFOVIR [Suspect]
     Dates: start: 200701
  23. TENOFOVIR [Suspect]
     Dates: start: 200811
  24. TENOFOVIR [Suspect]
  25. RALTEGRAVIR [Suspect]
     Indication: PRODUCT USED FOR UNKNOWN INDICATION
  26. GANCICLOVIR [Suspect]
     Indication: PROPHYLAXIS
     Dates: start: 201002
  27. DARUNAVIR [Suspect]
     Indication: PRODUCT USED FOR UNKNOWN INDICATION
  28. STAVUDINE [Concomitant]
     Indication: PRODUCT USED FOR UNKNOWN INDICATION
     Dates: start: 200209
  29. STAVUDINE [Concomitant]
     Dates: start: 200311
  30. STAVUDINE [Concomitant]
  31. NELFINAVIR [Concomitant]
     Indication: PRODUCT USED FOR UNKNOWN INDICATION
     Dates: start: 200209
  32. NELFINAVIR [Concomitant]
     Dates: start: 200301
  33. FOSAMPRENAVIR [Concomitant]
     Indication: PRODUCT USED FOR UNKNOWN INDICATION

REACTIONS (12)
  - Chorioretinitis [Unknown]
  - Cytomegalovirus infection [Unknown]
  - Colitis [Unknown]
  - Weight decreased [Unknown]
  - Renal impairment [Unknown]
  - Cytomegalovirus infection [Unknown]
  - CD4 lymphocytes decreased [Unknown]
  - Drug intolerance [Unknown]
  - Pyrexia [Unknown]
  - Amaurosis [Unknown]
  - Treatment noncompliance [Unknown]
  - Viral load increased [Unknown]
